FAERS Safety Report 14407498 (Version 1)
Quarter: 2018Q1

REPORT INFORMATION
  Report Type: Spontaneous
  Country: US (occurrence: US)
  Receive Date: 20180116
  Receipt Date: 20180116
  Transmission Date: 20180509
  Serious: Yes (Hospitalization)
  Sender: FDA-Public Use
  Company Number: None

PATIENT
  Age: 80 Year
  Sex: Female

DRUGS (1)
  1. LIDOCAINE W/1:100,000 EPI [Suspect]
     Active Substance: EPINEPHRINE\LIDOCAINE
     Indication: DENTAL LOCAL ANAESTHESIA
     Dosage: STRENGTH 2% PER ML?          OTHER FREQUENCY:ONCE;?
     Route: 004
     Dates: start: 20180116, end: 20180116

REACTIONS (6)
  - Dysphagia [None]
  - Speech disorder [None]
  - Malaise [None]
  - Throat tightness [None]
  - Flushing [None]
  - Hot flush [None]

NARRATIVE: CASE EVENT DATE: 20180116
